FAERS Safety Report 4596787-8 (Version None)
Quarter: 2005Q1

REPORT INFORMATION
  Report Type: 
  Country: None (occurrence: None)
  Receive Date: 20050225
  Receipt Date: 20050209
  Transmission Date: 20050727
  Serious: Yes (Other)
  Sender: FDA-Public Use
  Company Number: 2005US002363

PATIENT
  Age: 66 Year
  Sex: Male
  Weight: 101.1 kg

DRUGS (9)
  1. ALOXI [Suspect]
     Indication: PROPHYLAXIS OF NAUSEA AND VOMITING
     Dosage: 0.25 MG, SINGLE, INTRAVENOUS
     Route: 042
     Dates: start: 20050110, end: 20050110
  2. ALOXI [Suspect]
     Indication: PROPHYLAXIS OF NAUSEA AND VOMITING
     Dosage: 0.25 MG, SINGLE, INTRAVENOUS
     Route: 042
     Dates: start: 20050210, end: 20050210
  3. AZACITIDINE (AZACITIDINE) [Suspect]
     Indication: MYELODYSPLASTIC SYNDROME
     Dosage: QD, Q4WK, SUBCUTANEOUS
     Route: 058
     Dates: start: 20050110, end: 20050114
  4. AZACITIDINE (AZACITIDINE) [Suspect]
     Indication: MYELODYSPLASTIC SYNDROME
     Dosage: QD, Q4WK, SUBCUTANEOUS
     Route: 058
     Dates: start: 20050210, end: 20050216
  5. SODIUM CHLORIDE [Concomitant]
  6. DEXAMETHASONE [Concomitant]
  7. HYTRIN [Concomitant]
  8. TRIAMTERENE AND HYDROCHLOROTHIAZID ^HARRIS^ (TRIAMTERENE, HYDROCHLOROT [Concomitant]
  9. ALEVE [Concomitant]

REACTIONS (4)
  - ASTHENIA [None]
  - FALL [None]
  - HYPOAESTHESIA [None]
  - MYOCLONUS [None]
